FAERS Safety Report 16018268 (Version 1)
Quarter: 2019Q1

REPORT INFORMATION
  Report Type: Spontaneous
  Country: US (occurrence: US)
  Receive Date: 20190228
  Receipt Date: 20190228
  Transmission Date: 20190418
  Serious: No
  Sender: FDA-Public Use
  Company Number: PHEH2019US008748

PATIENT
  Age: 74 Year
  Sex: Female
  Weight: 99.79 kg

DRUGS (3)
  1. OMEPRAZOLE. [Suspect]
     Active Substance: OMEPRAZOLE
     Indication: PAIN
     Dosage: 20 MG, QD
     Route: 048
     Dates: start: 201711
  2. OMEPRAZOLE. [Suspect]
     Active Substance: OMEPRAZOLE
     Indication: INSOMNIA
  3. GABAPENTIN. [Suspect]
     Active Substance: GABAPENTIN
     Indication: NAUSEA
     Dosage: 300 MG, QHS
     Route: 065
     Dates: start: 201711

REACTIONS (2)
  - Inappropriate schedule of product administration [Unknown]
  - Hypersomnia [Not Recovered/Not Resolved]

NARRATIVE: CASE EVENT DATE: 201711
